FAERS Safety Report 6238050-5 (Version None)
Quarter: 2009Q2

REPORT INFORMATION
  Report Type: 
  Country: None (occurrence: None)
  Receive Date: 20090622
  Receipt Date: 20090618
  Transmission Date: 20091009
  Serious: Yes (Death)
  Sender: FDA-Public Use
  Company Number: CH-BRISTOL-MYERS SQUIBB COMPANY-14654024

PATIENT
  Age: 48 Year
  Sex: Male

DRUGS (14)
  1. ABILIFY [Suspect]
     Indication: SCHIZOPHRENIA
     Dosage: 1 AMPUL ASLO TAKEN IV ALSO
     Route: 030
     Dates: start: 20090403, end: 20090403
  2. VALIUM [Suspect]
     Dosage: 5MG (1-0-1), 10 MG AND 5 MG ON 02APR09 AND 10 MG ON 02APR09
     Route: 030
     Dates: start: 20090402, end: 20090402
  3. HALDOL [Suspect]
     Dosage: 10 MG GIVEN TWICE ON 02APR09
     Route: 030
     Dates: start: 20090402, end: 20090402
  4. LEPONEX [Concomitant]
     Dosage: ALSO TAKEN 600MG.
     Dates: start: 20090402
  5. LAMICTAL [Concomitant]
     Dosage: TAB (1-0-0)
  6. AKINETON [Concomitant]
     Dosage: TAB
  7. ANDROCUR [Concomitant]
     Dosage: TAB
  8. TRILAFON [Concomitant]
     Dosage: 64MG, DRAGEE(4-0-4)
  9. CLOPIXOL [Concomitant]
     Dosage: 120 MG, DRAGEE, (1-1-1)
  10. INDERAL [Concomitant]
     Dosage: TAB, 20MG
  11. TEMESTA [Concomitant]
     Dosage: (0.5-1-0)
  12. SOLIAN [Concomitant]
     Dosage: 800MG, TABLETS, (2-0-2)
  13. BELLAFIT N [Concomitant]
     Indication: SALIVARY HYPERSECRETION
     Dates: start: 20090330
  14. NULYTELY [Concomitant]
     Indication: CONSTIPATION
     Dosage: DOSAGE FROM: SACHET
     Dates: start: 20090330

REACTIONS (1)
  - DEATH [None]
